FAERS Safety Report 6020283-4 (Version None)
Quarter: 2008Q4

REPORT INFORMATION
  Report Type: 
  Country: None (occurrence: None)
  Receive Date: 20081223
  Receipt Date: 20081223
  Transmission Date: 20090506
  Serious: Yes (Hospitalization)
  Sender: FDA-Public Use
  Company Number: None

PATIENT
  Age: 46 Year
  Sex: Male
  Weight: 94.3 kg

DRUGS (2)
  1. SUNITINIB, 12.5 MG [Suspect]
     Indication: NON-SMALL CELL LUNG CANCER
     Dosage: 37.5 MG QD P.O.
     Route: 048
     Dates: start: 20080814, end: 20080828
  2. RAPAMYCIN, 2 MG [Suspect]
     Indication: NON-SMALL CELL LUNG CANCER
     Dosage: 2 MG QD P.O.
     Route: 048
     Dates: start: 20080814, end: 20080828

REACTIONS (3)
  - DEHYDRATION [None]
  - DIARRHOEA [None]
  - VOMITING [None]
